FAERS Safety Report 20665602 (Version 2)
Quarter: 2022Q2

REPORT INFORMATION
  Report Type: Spontaneous
  Country: NZ (occurrence: None)
  Receive Date: 20220402
  Receipt Date: 20220504
  Transmission Date: 20220720
  Serious: Yes (Death, Hospitalization)
  Sender: FDA-Public Use
  Company Number: NZ-ROCHE-2946105

PATIENT
  Age: 77 Year
  Sex: Female
  Weight: 82 kg

DRUGS (2)
  1. TECENTRIQ [Suspect]
     Active Substance: ATEZOLIZUMAB
     Indication: Hereditary non-polyposis colorectal cancer syndrome
     Route: 065
     Dates: start: 20211012, end: 20211217
  2. TECENTRIQ [Suspect]
     Active Substance: ATEZOLIZUMAB
     Indication: Colon cancer metastatic

REACTIONS (3)
  - Death [Fatal]
  - Malignant gastrointestinal obstruction [Unknown]
  - Off label use [Unknown]

NARRATIVE: CASE EVENT DATE: 20211116
